FAERS Safety Report 5802355-X (Version None)
Quarter: 2008Q3

REPORT INFORMATION
  Report Type: 
  Country: None (occurrence: None)
  Receive Date: 20080707
  Receipt Date: 20080630
  Transmission Date: 20090109
  Serious: Yes (Hospitalization)
  Sender: FDA-Public Use
  Company Number: US-ABBOTT-08P-163-0458970-00

PATIENT
  Sex: Male
  Weight: 60.382 kg

DRUGS (10)
  1. HUMIRA [Suspect]
     Indication: CROHN'S DISEASE
     Route: 058
     Dates: start: 20071029
  2. HUMIRA [Suspect]
     Route: 058
  3. MESALAMINE [Concomitant]
     Indication: CROHN'S DISEASE
     Dosage: 2 TABS, 2 IN 1 D
     Route: 048
  4. SERETIDE [Concomitant]
     Indication: EMPHYSEMA
     Route: 048
  5. TIOTROPIUM BROMIDE [Concomitant]
     Indication: EMPHYSEMA
  6. ALBUTEROL [Concomitant]
     Indication: EMPHYSEMA
  7. CYANOCOBALAMIN-TANNIN COMPLEX [Concomitant]
     Indication: PERNICIOUS ANAEMIA
     Route: 050
  8. CYANOCOBALAMIN-TANNIN COMPLEX [Concomitant]
     Indication: PROPHYLAXIS
  9. MULTI-VITAMINS [Concomitant]
     Indication: DRUG USE FOR UNKNOWN INDICATION
     Route: 048
  10. FERROUS SULFATE TAB [Concomitant]
     Indication: ANAEMIA
     Route: 048

REACTIONS (3)
  - CROHN'S DISEASE [None]
  - HYPERTENSION [None]
  - INTESTINAL STENOSIS [None]
